FAERS Safety Report 15103017 (Version 1)
Quarter: 2018Q3

REPORT INFORMATION
  Report Type: Report from Study
  Country: TH (occurrence: TH)
  Receive Date: 20180703
  Receipt Date: 20180703
  Transmission Date: 20181010
  Serious: Yes (Other)
  Sender: FDA-Public Use
  Company Number: TH-TEVA-2018-TH-919177

PATIENT
  Age: 67 Year
  Sex: Female

DRUGS (2)
  1. CBDCA [Suspect]
     Active Substance: CARBOPLATIN
     Indication: ENDOMETRIAL CANCER
     Route: 065
  2. PACLITAXEL. [Suspect]
     Active Substance: PACLITAXEL
     Indication: ENDOMETRIAL CANCER
     Route: 065

REACTIONS (2)
  - Escherichia bacteraemia [Recovering/Resolving]
  - Febrile neutropenia [Unknown]
